FAERS Safety Report 8894580 (Version 1)
Quarter: 2012Q4

REPORT INFORMATION
  Report Type: 
  Country: US (occurrence: US)
  Receive Date: 20121107
  Receipt Date: 20121107
  Transmission Date: 20130627
  Serious: No
  Sender: FDA-Public Use
  Company Number: US-AMGEN-USASP2011059311

PATIENT
  Age: 64 Year
  Sex: Male

DRUGS (8)
  1. ENBREL [Suspect]
     Indication: PRODUCT USED FOR UNKNOWN INDICATION
     Dosage: 50 mg, 2 times/wk
     Route: 058
  2. METHOTREXATE [Concomitant]
     Dosage: 2.5 mg, UNK
  3. CODEINE SULFATE [Concomitant]
     Dosage: 15 mg, UNK
  4. FOLIC ACID [Concomitant]
     Dosage: 1 mg, UNK
  5. IBUPROFEN [Concomitant]
     Dosage: 200 mg, UNK
  6. MULTIVITAMIN                       /00097801/ [Concomitant]
  7. HYDROXYZINE PAM [Concomitant]
     Dosage: 100 mg, UNK
  8. IRON [Concomitant]
     Dosage: 18 mg, UNK

REACTIONS (1)
  - Sinusitis [Unknown]
